FAERS Safety Report 8842387 (Version 1)
Quarter: 2012Q4

REPORT INFORMATION
  Report Type: Spontaneous
  Country: US (occurrence: None)
  Receive Date: 20121016
  Receipt Date: 20121016
  Transmission Date: 20130627
  Serious: No
  Sender: FDA-Public Use
  Company Number: None

PATIENT
  Sex: Male
  Weight: 63.5 kg

DRUGS (1)
  1. METHYLPREDNISOLONE [Suspect]

REACTIONS (3)
  - Nausea [None]
  - Vomiting [None]
  - Dizziness [None]
